FAERS Safety Report 15148137 (Version 9)
Quarter: 2019Q2

REPORT INFORMATION
  Report Type: Report from Study
  Country: JP (occurrence: JP)
  Receive Date: 20180716
  Receipt Date: 20190502
  Transmission Date: 20190711
  Serious: Yes (Hospitalization, Other)
  Sender: FDA-Public Use
  Company Number: JP-ROCHE-2154343

PATIENT
  Age: 46 Year
  Sex: Female
  Weight: 44.7 kg

DRUGS (23)
  1. ATEZOLIZUMAB. [Suspect]
     Active Substance: ATEZOLIZUMAB
     Indication: OVARIAN CANCER
     Dosage: MOST RECENT DOSE OF BLINDED ATEZOLIZUMAB PRIOR TO SAE ONSET
     Route: 042
     Dates: start: 20180626
  2. ALOXI [Concomitant]
     Active Substance: PALONOSETRON HYDROCHLORIDE
     Indication: PREMEDICATION
     Route: 065
     Dates: start: 20180626, end: 20180626
  3. MUCOSTA [Concomitant]
     Active Substance: REBAMIPIDE
     Indication: ABDOMINAL PAIN
     Route: 065
     Dates: start: 20180626
  4. ANTEBATE [Concomitant]
     Active Substance: BETAMETHASONE DIPROPIONATE
     Indication: ERYTHEMA MULTIFORME
     Route: 050
     Dates: start: 20180711, end: 20180718
  5. PACLITAXEL. [Suspect]
     Active Substance: PACLITAXEL
     Indication: OVARIAN CANCER
     Dosage: AS PER PROTOCOL?MOST RECENT DOSE OF PACLITAXEL PRIOR TO SAE ONSET (253 MG)
     Route: 042
     Dates: start: 20180626
  6. AZUNOL [SODIUM GUALENATE] [Concomitant]
     Indication: CHEILITIS
     Route: 065
     Dates: start: 20180710, end: 20180930
  7. LOXONIN PAP [Concomitant]
     Indication: ABDOMINAL PAIN
     Route: 065
     Dates: start: 20180626
  8. ALLELOCK [Concomitant]
     Active Substance: OLOPATADINE HYDROCHLORIDE
     Indication: ERYTHEMA MULTIFORME
     Route: 065
     Dates: start: 20180711, end: 20180716
  9. BIOFERMIN R [Concomitant]
     Active Substance: DIETARY SUPPLEMENT\PROBIOTICS
     Indication: CONSTIPATION
     Route: 065
     Dates: start: 20180608
  10. ZANTAC [Concomitant]
     Active Substance: RANITIDINE HYDROCHLORIDE
     Indication: PREMEDICATION
     Route: 065
     Dates: start: 20180626, end: 20180626
  11. NEORESTAR [Concomitant]
     Active Substance: CHLORPHENIRAMINE MALEATE
     Indication: PREMEDICATION
     Route: 065
     Dates: start: 20180626, end: 20180626
  12. LOCOID [Concomitant]
     Active Substance: HYDROCORTISONE BUTYRATE
     Indication: ERYTHEMA MULTIFORME
     Route: 050
     Dates: start: 20180711, end: 20180718
  13. MAGNESIUM OXIDE. [Concomitant]
     Active Substance: MAGNESIUM OXIDE
     Indication: CONSTIPATION
     Route: 065
     Dates: start: 20180608
  14. GASMOTIN [Concomitant]
     Active Substance: MOSAPRIDE CITRATE
     Indication: ABDOMINAL PAIN
     Route: 065
     Dates: start: 20180608
  15. MUCOSTA [Concomitant]
     Active Substance: REBAMIPIDE
     Indication: ABDOMINAL PAIN
     Route: 065
     Dates: start: 20180626
  16. PYDOXAL [Concomitant]
     Active Substance: PYRIDOXAL
     Indication: ERYTHEMA MULTIFORME
     Route: 065
     Dates: start: 20180716
  17. CARBOPLATIN. [Suspect]
     Active Substance: CARBOPLATIN
     Indication: OVARIAN CANCER
     Dosage: AREA UNDER THE CURVE (AUC) OF 6 MG/MLXMIN AS PER PROTOCOL?MOST RECENT DOSE OF CARBOPLATIN PRIOR TO S
     Route: 042
     Dates: start: 20180626
  18. PRIMPERAN [Concomitant]
     Active Substance: METOCLOPRAMIDE HYDROCHLORIDE
     Route: 065
     Dates: start: 20180627
  19. AZUNOL [SODIUM GUALENATE] [Concomitant]
     Indication: OROPHARYNGEAL PAIN
     Route: 065
     Dates: start: 20180711
  20. DEXALTIN [Concomitant]
     Active Substance: DEXAMETHASONE
     Indication: STOMATITIS
     Route: 065
     Dates: start: 20180716
  21. DECADRON [Concomitant]
     Active Substance: DEXAMETHASONE
     Indication: PREMEDICATION
     Route: 042
     Dates: start: 20180626, end: 20180626
  22. XYLOCAINE [Concomitant]
     Active Substance: LIDOCAINE HYDROCHLORIDE
     Indication: ASCITES
     Route: 065
     Dates: start: 20180627, end: 20180627
  23. TRANEXAMIC ACID. [Concomitant]
     Active Substance: TRANEXAMIC ACID
     Indication: ERYTHEMA MULTIFORME
     Route: 065
     Dates: start: 20180712

REACTIONS (2)
  - Ascites [Recovered/Resolved]
  - Febrile neutropenia [Recovered/Resolved]

NARRATIVE: CASE EVENT DATE: 20180627
